FAERS Safety Report 21349934 (Version 5)
Quarter: 2023Q1

REPORT INFORMATION
  Report Type: Spontaneous
  Country: US (occurrence: US)
  Receive Date: 20220919
  Receipt Date: 20230109
  Transmission Date: 20230417
  Serious: No
  Sender: FDA-Public Use
  Company Number: US-PFIZER INC-PV202200065416

PATIENT
  Age: 67 Year
  Sex: Female

DRUGS (1)
  1. XELJANZ XR [Suspect]
     Active Substance: TOFACITINIB CITRATE
     Dosage: TAKE 1 TABLET BY ORAL ROUTE EVERY DAY
     Route: 048

REACTIONS (5)
  - Product dose omission issue [Unknown]
  - COVID-19 [Unknown]
  - Oral viral infection [Unknown]
  - Condition aggravated [Unknown]
  - Pain [Unknown]
